FAERS Safety Report 11258020 (Version 7)
Quarter: 2016Q1

REPORT INFORMATION
  Report Type: Report from Study
  Country: JP (occurrence: JP)
  Receive Date: 20150710
  Receipt Date: 20160203
  Transmission Date: 20160525
  Serious: Yes (Hospitalization)
  Sender: FDA-Public Use
  Company Number: PHJP2015JP011369

PATIENT
  Age: 11 Month
  Sex: Male

DRUGS (2)
  1. ACZ885 [Suspect]
     Active Substance: CANAKINUMAB
     Indication: CRYOPYRIN ASSOCIATED PERIODIC SYNDROME
     Dosage: 2 MG/KG, QD
     Route: 058
     Dates: start: 201502
  2. ACZ885 [Suspect]
     Active Substance: CANAKINUMAB
     Dosage: 4 MG/KG, QD
     Route: 058

REACTIONS (6)
  - C-reactive protein increased [Recovering/Resolving]
  - Diarrhoea [Not Recovered/Not Resolved]
  - Asthma [Unknown]
  - C-reactive protein increased [Recovered/Resolved]
  - Drug administered to patient of inappropriate age [Unknown]
  - Oxygen saturation decreased [Unknown]

NARRATIVE: CASE EVENT DATE: 201502
